FAERS Safety Report 6927931-2 (Version None)
Quarter: 2010Q3

REPORT INFORMATION
  Report Type: 
  Country: None (occurrence: None)
  Receive Date: 20100817
  Receipt Date: 20100804
  Transmission Date: 20110219
  Serious: Yes (Hospitalization)
  Sender: FDA-Public Use
  Company Number: DE-ABBOTT-10P-062-0661902-00

PATIENT
  Sex: Male
  Weight: 93 kg

DRUGS (14)
  1. HUMIRA [Suspect]
     Indication: PSORIATIC ARTHROPATHY
     Dosage: 40MG EOW
     Route: 058
     Dates: start: 20090201, end: 20100601
  2. ARAVA [Concomitant]
     Indication: PSORIATIC ARTHROPATHY
     Route: 048
     Dates: start: 20051101, end: 20100601
  3. LISINOPRIL [Concomitant]
     Indication: PRODUCT USED FOR UNKNOWN INDICATION
     Dosage: BID:MORNING AND EVENING
  4. AMLODIPIN 5 [Concomitant]
     Indication: PRODUCT USED FOR UNKNOWN INDICATION
     Dosage: BID MORNING AND EVENING
  5. BISOHEXAL(BISOPROLOL)2.5 [Concomitant]
     Indication: PRODUCT USED FOR UNKNOWN INDICATION
     Dosage: OPD:MORNING
  6. EUPHYLONG (THEOPHYLLIN) 375 [Concomitant]
     Indication: PRODUCT USED FOR UNKNOWN INDICATION
     Dosage: OPD:EVENING
  7. VOLTAREN (DICLOFENAC) DISP [Concomitant]
     Indication: PRODUCT USED FOR UNKNOWN INDICATION
     Dosage: OPD:MORNING
  8. PREDNISOLON 5 [Concomitant]
     Indication: PRODUCT USED FOR UNKNOWN INDICATION
     Dosage: OPD:EVENING
  9. THYRONAJOD (LEVOTHYROXIN) 50 [Concomitant]
     Indication: PRODUCT USED FOR UNKNOWN INDICATION
     Dosage: OPD:MORNING
  10. PANTOZOL (PANTOPRAZOL) 20 [Concomitant]
     Indication: PRODUCT USED FOR UNKNOWN INDICATION
     Dosage: OPD:MORNING
  11. DUROGESIC (FENTANYL) 100 MCG [Concomitant]
     Indication: PRODUCT USED FOR UNKNOWN INDICATION
     Dosage: EVERY 3 DAYS
  12. CLEXANE (ENOXAPARIN) 40 [Concomitant]
     Indication: PRODUCT USED FOR UNKNOWN INDICATION
     Dosage: OPD:MORNING UNTIL FULL MOBILITY
  13. DICLO 150MG [Concomitant]
     Indication: PRODUCT USED FOR UNKNOWN INDICATION
     Dates: start: 20031201
  14. GLUCOCORTICOIDS [Concomitant]
     Indication: PRODUCT USED FOR UNKNOWN INDICATION
     Dosage: 5.0MG PER DAY

REACTIONS (10)
  - ASTHENIA [None]
  - CHILLS [None]
  - ERYTHEMA [None]
  - LOCALISED INFECTION [None]
  - LYMPHADENITIS [None]
  - MALAISE [None]
  - NECROTISING FASCIITIS [None]
  - OEDEMA PERIPHERAL [None]
  - VASCULITIS [None]
  - WOUND [None]
